FAERS Safety Report 7283413-2 (Version None)
Quarter: 2011Q1

REPORT INFORMATION
  Report Type: 
  Country: None (occurrence: None)
  Receive Date: 20110209
  Receipt Date: 20101005
  Transmission Date: 20110831
  Serious: No
  Sender: FDA-Public Use
  Company Number: A0885976A

PATIENT
  Age: 35 Year
  Sex: Male

DRUGS (4)
  1. PRILOSEC [Concomitant]
  2. PAXIL [Suspect]
  3. XANAX [Concomitant]
  4. HYTRIN [Concomitant]

REACTIONS (1)
  - HYPERHIDROSIS [None]
